FAERS Safety Report 8493804-X (Version None)
Quarter: 2012Q3

REPORT INFORMATION
  Report Type: 
  Country: None (occurrence: None)
  Receive Date: 20120706
  Receipt Date: 20120628
  Transmission Date: 20120928
  Serious: Yes (Other)
  Sender: FDA-Public Use
  Company Number: US-BAXTER-2012BAX010169

PATIENT
  Sex: Female

DRUGS (1)
  1. ARALAST NP [Suspect]
     Route: 042

REACTIONS (3)
  - HERPES ZOSTER [None]
  - PULMONARY FUNCTION TEST DECREASED [None]
  - MULTIPLE SCLEROSIS RELAPSE [None]
